FAERS Safety Report 12802793 (Version 1)
Quarter: 2016Q4

REPORT INFORMATION
  Report Type: Spontaneous
  Country: US (occurrence: US)
  Receive Date: 20161003
  Receipt Date: 20161003
  Transmission Date: 20170207
  Serious: No
  Sender: FDA-Public Use
  Company Number: US-GLAXOSMITHKLINE-US2016GSK143744

PATIENT
  Sex: Male

DRUGS (2)
  1. LAMICTAL XR [Suspect]
     Active Substance: LAMOTRIGINE
     Indication: BIPOLAR DISORDER
     Dosage: DOSE/STRENGTH 200 MG
     Dates: start: 201609, end: 201609
  2. LAMOTRIGINE TABLET [Suspect]
     Active Substance: LAMOTRIGINE
     Indication: BIPOLAR DISORDER
     Dosage: DOSE/STRENGTH 200 MG

REACTIONS (3)
  - Drug ineffective [Unknown]
  - Product substitution issue [Not Recovered/Not Resolved]
  - Ill-defined disorder [Not Recovered/Not Resolved]
